FAERS Safety Report 5416495-0 (Version None)
Quarter: 2007Q3

REPORT INFORMATION
  Report Type: 
  Country: None (occurrence: None)
  Receive Date: 20070816
  Receipt Date: 20070808
  Transmission Date: 20080115
  Serious: Yes (Other)
  Sender: FDA-Public Use
  Company Number: JP-BRISTOL-MYERS SQUIBB COMPANY-13878509

PATIENT
  Age: 73 Year
  Sex: Female

DRUGS (4)
  1. ENDOXAN [Suspect]
     Indication: VASCULITIS
     Dates: start: 20061201
  2. BAKTAR [Suspect]
     Indication: PROPHYLAXIS
     Dates: start: 20061201
  3. PREDONINE [Concomitant]
     Dates: start: 20061201
  4. GANCICLOVIR [Concomitant]
     Dates: start: 20070101

REACTIONS (1)
  - NEUTROPHIL PELGER-HUET ANOMALY PRESENT [None]
